FAERS Safety Report 18363495 (Version 2)
Quarter: 2021Q1

REPORT INFORMATION
  Report Type: Spontaneous
  Country: US (occurrence: US)
  Receive Date: 20201008
  Receipt Date: 20210114
  Transmission Date: 20210419
  Serious: Yes (Other)
  Sender: FDA-Public Use
  Company Number: US-INCYTE CORPORATION-2020IN009621

PATIENT

DRUGS (2)
  1. JAKAFI [Suspect]
     Active Substance: RUXOLITINIB
     Indication: MYELOFIBROSIS
     Dosage: 15MG QOD, ALTERNATING W/ 10MG QOD
     Route: 048
     Dates: start: 20190821
  2. JAKAFI [Suspect]
     Active Substance: RUXOLITINIB
     Dosage: 15MG QOD, ALTERNATING W/ 10MG QOD
     Route: 048
     Dates: start: 20190822

REACTIONS (4)
  - Autoimmune disorder [Unknown]
  - Laboratory test abnormal [Unknown]
  - Anaemia [Unknown]
  - Polymyalgia rheumatica [Unknown]
